FAERS Safety Report 6812173-1 (Version None)
Quarter: 2010Q3

REPORT INFORMATION
  Report Type: 
  Country: None (occurrence: None)
  Receive Date: 20100701
  Receipt Date: 20100621
  Transmission Date: 20110219
  Serious: Yes (Hospitalization)
  Sender: FDA-Public Use
  Company Number: AU-NOVOPROD-310612

PATIENT
  Sex: Female
  Weight: 59 kg

DRUGS (11)
  1. MIXTARD HUMAN 70/30 [Suspect]
     Indication: TYPE 1 DIABETES MELLITUS
     Dosage: 56 U, QD
     Route: 058
     Dates: start: 20000101
  2. FRUSEMIDE                          /00032601/ [Concomitant]
  3. PLAVIX [Concomitant]
  4. PANTOPRAZOLE SODIUM SESQUIHYDRATE [Concomitant]
  5. IKOREL [Concomitant]
  6. DILTIAZEM [Concomitant]
  7. PRESSIN [Concomitant]
  8. IRON [Concomitant]
  9. SIMVASTATIN [Concomitant]
  10. GLYCERYL TRINITRATE [Concomitant]
  11. FOLATE [Concomitant]

REACTIONS (1)
  - MYOCARDIAL INFARCTION [None]
